FAERS Safety Report 7621308-2 (Version None)
Quarter: 2011Q3

REPORT INFORMATION
  Report Type: 
  Country: None (occurrence: None)
  Receive Date: 20110719
  Receipt Date: 20110715
  Transmission Date: 20111222
  Serious: Yes (Hospitalization, Disabling)
  Sender: FDA-Public Use
  Company Number: JP-B.I. PHARMACEUTICALS,INC./RIDGEFIELD-2011-BP-14584NB

PATIENT
  Sex: Male
  Weight: 57.5 kg

DRUGS (4)
  1. PRADAXA [Suspect]
     Indication: ATRIAL FIBRILLATION
     Dosage: 150 MG
     Route: 048
     Dates: start: 20110516, end: 20110607
  2. VERAPAMIL HCL [Concomitant]
     Indication: ATRIAL FIBRILLATION
     Dosage: 60 MG
     Route: 048
     Dates: start: 20110516, end: 20110622
  3. LASIX [Concomitant]
     Indication: CARDIAC FAILURE
     Dosage: 10 MG
     Route: 048
     Dates: start: 20110516
  4. VERAPAMIL HCL [Concomitant]
     Indication: HEART RATE

REACTIONS (3)
  - DRUG EFFECT DECREASED [None]
  - CEREBRAL ARTERY EMBOLISM [None]
  - ABDOMINAL DISCOMFORT [None]
